FAERS Safety Report 5177343-X (Version None)
Quarter: 2006Q4

REPORT INFORMATION
  Report Type: 
  Country: None (occurrence: None)
  Receive Date: 20061218
  Receipt Date: 20061207
  Transmission Date: 20070319
  Serious: Yes (Hospitalization)
  Sender: FDA-Public Use
  Company Number: 2006GB02235

PATIENT
  Age: 14 Year
  Sex: Male
  Weight: 41 kg

DRUGS (9)
  1. PROPOFOL [Suspect]
     Indication: ANAESTHESIA
     Route: 042
     Dates: start: 20061108, end: 20061108
  2. SEVOFLURANE [Suspect]
     Indication: ANAESTHESIA
     Route: 055
     Dates: start: 20061108, end: 20061108
  3. CEFUROXIME [Concomitant]
     Dates: start: 20061108
  4. DEXAMETHASONE [Concomitant]
     Indication: INFLAMMATION
     Route: 048
     Dates: start: 20061108
  5. DICLOFENAC SODIUM [Concomitant]
     Indication: PROCEDURAL PAIN
     Route: 048
     Dates: start: 20061109, end: 20061109
  6. MIDAZOLAM HCL [Concomitant]
     Dates: start: 20061108
  7. MORPHINE [Concomitant]
     Route: 042
     Dates: start: 20061108
  8. OMEPRAZOLE [Concomitant]
     Indication: GASTRIC PERFORATION
     Route: 048
     Dates: start: 20061109
  9. ACETAMINOPHEN [Concomitant]
     Route: 048
     Dates: start: 20061108

REACTIONS (1)
  - HEPATOTOXICITY [None]
